FAERS Safety Report 6389519-4 (Version None)
Quarter: 2009Q4

REPORT INFORMATION
  Report Type: 
  Country: None (occurrence: None)
  Receive Date: 20091005
  Receipt Date: 20091005
  Transmission Date: 20100525
  Serious: No
  Sender: FDA-Public Use
  Company Number: None

PATIENT
  Age: 51 Year
  Sex: Male
  Weight: 124 kg

DRUGS (1)
  1. HEPARIN [Suspect]
     Indication: CORONARY ARTERY BYPASS
     Dosage: 60,000 UNITS IV
     Route: 042
     Dates: start: 20091002, end: 20091002

REACTIONS (3)
  - COAGULATION FACTOR DEFICIENCY [None]
  - COAGULATION TIME ABNORMAL [None]
  - PRODUCT QUALITY ISSUE [None]
